FAERS Safety Report 21671251 (Version 3)
Quarter: 2023Q1

REPORT INFORMATION
  Report Type: Report from Study
  Country: US (occurrence: US)
  Receive Date: 20221202
  Receipt Date: 20230110
  Transmission Date: 20230418
  Serious: Yes (Other)
  Sender: FDA-Public Use
  Company Number: US-ABBVIE-22K-163-4518995-00

PATIENT
  Age: 57 Year
  Sex: Female

DRUGS (3)
  1. RINVOQ [Suspect]
     Active Substance: UPADACITINIB
     Indication: Ankylosing spondylitis
     Dosage: ER?FORM STRENGTH: 15 MILLIGRAM
     Route: 048
     Dates: start: 20221015
  2. RINVOQ [Suspect]
     Active Substance: UPADACITINIB
     Indication: Ankylosing spondylitis
     Dosage: ER?LAST ADMIN DATE : 2022?FORM STRENGTH: 15 MILLIGRAM
     Route: 048
     Dates: start: 20220727
  3. RINVOQ [Suspect]
     Active Substance: UPADACITINIB
     Indication: Ankylosing spondylitis
     Dosage: ER?FORM STRENGTH: 15 MILLIGRAM
     Route: 048
     Dates: start: 202208, end: 202209

REACTIONS (9)
  - Toe operation [Recovering/Resolving]
  - Arthralgia [Unknown]
  - Nasal congestion [Unknown]
  - Nasopharyngitis [Unknown]
  - Upper respiratory tract infection [Not Recovered/Not Resolved]
  - Malaise [Unknown]
  - Skin disorder [Unknown]
  - Acne [Not Recovered/Not Resolved]
  - Joint swelling [Unknown]

NARRATIVE: CASE EVENT DATE: 20220823
